FAERS Safety Report 6959503-8 (Version None)
Quarter: 2010Q3

REPORT INFORMATION
  Report Type: 
  Country: None (occurrence: None)
  Receive Date: 20100827
  Receipt Date: 20100819
  Transmission Date: 20110219
  Serious: Yes (Other)
  Sender: FDA-Public Use
  Company Number: 2010SP037024

PATIENT
  Age: 56 Year
  Sex: Female

DRUGS (3)
  1. NASONEX [Suspect]
     Indication: RHINITIS
     Dosage: 200 MCG; QD; NAS
     Route: 045
     Dates: start: 20050101
  2. LORATADINE [Concomitant]
  3. LISINOPRIL [Concomitant]

REACTIONS (3)
  - DRUG DEPENDENCE [None]
  - DRUG EFFECT DECREASED [None]
  - PRODUCT QUALITY ISSUE [None]
